FAERS Safety Report 9017664 (Version 1)
Quarter: 2013Q1

REPORT INFORMATION
  Report Type: Spontaneous
  Country: US (occurrence: US)
  Receive Date: 20130118
  Receipt Date: 20130118
  Transmission Date: 20140127
  Serious: Yes (Other)
  Sender: FDA-Public Use
  Company Number: US-AMGEN-USASP2013002108

PATIENT
  Age: 95 Year
  Sex: Female

DRUGS (1)
  1. NPLATE [Suspect]
     Indication: IDIOPATHIC THROMBOCYTOPENIC PURPURA
     Dosage: 10 UNK, QWK
     Dates: start: 201201, end: 201212

REACTIONS (2)
  - Therapeutic response decreased [Recovering/Resolving]
  - Platelet count decreased [Unknown]
